FAERS Safety Report 16904487 (Version 3)
Quarter: 2019Q4

REPORT INFORMATION
  Report Type: Spontaneous
  Country: US (occurrence: US)
  Receive Date: 20191010
  Receipt Date: 20191127
  Transmission Date: 20200122
  Serious: Yes (Other)
  Sender: FDA-Public Use
  Company Number: US-PFIZER INC-2019434777

PATIENT
  Age: 66 Year
  Sex: Female

DRUGS (1)
  1. NICOTROL [Suspect]
     Active Substance: NICOTINE
     Dosage: SMOKING 3 PACKS DAILY

REACTIONS (8)
  - Post-traumatic stress disorder [Unknown]
  - Mental disorder [Not Recovered/Not Resolved]
  - Major depression [Unknown]
  - Panic attack [Unknown]
  - Agoraphobia [Unknown]
  - Depression [Not Recovered/Not Resolved]
  - Loss of personal independence in daily activities [Unknown]
  - Anxiety [Not Recovered/Not Resolved]
